FAERS Safety Report 6021911-X (Version None)
Quarter: 2008Q4

REPORT INFORMATION
  Report Type: 
  Country: None (occurrence: None)
  Receive Date: 20081222
  Receipt Date: 20081023
  Transmission Date: 20090506
  Serious: No
  Sender: FDA-Public Use
  Company Number: ALL 1-2008-03100

PATIENT
  Sex: Male

DRUGS (1)
  1. VYVANSE [Suspect]
     Dosage: 30 MG, ORAL
     Route: 048

REACTIONS (1)
  - DRUG EFFECT DECREASED [None]
